FAERS Safety Report 8160910 (Version 3)
Quarter: 2014Q2

REPORT INFORMATION
  Report Type: Spontaneous
  Country: None (occurrence: None)
  Receive Date: 20110919
  Receipt Date: 20140416
  Transmission Date: 20141212
  Serious: Yes (Hospitalization, Other)
  Sender: FDA-Public Use
  Company Number: 08-AUR-05153

PATIENT
  Age: 56 Year
  Sex: Male

DRUGS (3)
  1. SIMVASTATIN [Suspect]
     Indication: PRODUCT USED FOR UNKNOWN INDICATION
     Dosage: 20 MG (20 MG,1 IN 1 D),ORAL ; (40 MG,),ORAL
     Route: 048
  2. ASPIRIN (ACETYLSALICYLIC ACID) [Concomitant]
  3. CLOPIDOGREL (CLOPIDOGREL) [Concomitant]

REACTIONS (9)
  - Compartment syndrome [None]
  - Myositis [None]
  - Pallor [None]
  - Muscle necrosis [None]
  - Erythema nodosum [None]
  - Muscle haemorrhage [None]
  - Hypothyroidism [None]
  - Rhabdomyolysis [None]
  - Drug interaction [None]
